FAERS Safety Report 7741180-X (Version None)
Quarter: 2011Q3

REPORT INFORMATION
  Report Type: 
  Country: None (occurrence: None)
  Receive Date: 20110909
  Receipt Date: 20110829
  Transmission Date: 20111222
  Serious: Yes (Other)
  Sender: FDA-Public Use
  Company Number: US-ELI_LILLY_AND_COMPANY-US201108009340

PATIENT
  Sex: Female

DRUGS (11)
  1. CYMBALTA [Suspect]
     Dosage: 60 MG, QD
     Dates: start: 20110401
  2. CHROMIUM CHLORIDE [Concomitant]
     Dosage: 500 MG, BID
  3. FUROSEMIDE [Concomitant]
  4. CINNAMON [Concomitant]
  5. HUMULIN 70/30 [Concomitant]
  6. CYMBALTA [Suspect]
     Indication: DIABETIC NEUROPATHY
     Dosage: UNK, UNKNOWN
  7. METFORMIN [Concomitant]
  8. FLUTICASONE PROPIONATE [Concomitant]
     Dosage: UNK, PRN
     Route: 045
  9. GABAPENTIN [Concomitant]
  10. LISINOPRIL [Concomitant]
  11. ALPHA LIPOIC ACID [Concomitant]
     Dosage: 600 MG, QD

REACTIONS (5)
  - OEDEMA PERIPHERAL [None]
  - CATARACT OPERATION [None]
  - DRUG INEFFECTIVE [None]
  - BALANCE DISORDER [None]
  - GAIT DISTURBANCE [None]
